FAERS Safety Report 8431151-2 (Version None)
Quarter: 2012Q2

REPORT INFORMATION
  Report Type: 
  Country: None (occurrence: None)
  Receive Date: 20120612
  Receipt Date: 20120529
  Transmission Date: 20120825
  Serious: Yes (Other)
  Sender: FDA-Public Use
  Company Number: CHPA2012US011478

PATIENT
  Age: 79 Year
  Sex: Female

DRUGS (5)
  1. FISH OIL [Concomitant]
  2. BENEFIBER W/ WHEAT DEXTRIN [Suspect]
     Indication: SUPPLEMENTATION THERAPY
     Dosage: 3 TSP, QD
     Route: 048
     Dates: start: 20110101, end: 20120501
  3. D3-VICOTRAT [Concomitant]
  4. CENTRUM [Concomitant]
  5. BENEFIBER SUGAR FREE [Suspect]
     Indication: SUPPLEMENTATION THERAPY
     Dosage: 2 DF, QD
     Route: 048
     Dates: start: 20120501

REACTIONS (1)
  - BURSITIS [None]
